FAERS Safety Report 17466279 (Version 1)
Quarter: 2020Q1

REPORT INFORMATION
  Report Type: Report from Study
  Country: IN (occurrence: IN)
  Receive Date: 20200227
  Receipt Date: 20200227
  Transmission Date: 20200409
  Serious: Yes (Other)
  Sender: FDA-Public Use
  Company Number: IN-AUROBINDO-AUR-APL-2020-010074

PATIENT
  Sex: Male

DRUGS (9)
  1. MELPHALAN. [Suspect]
     Active Substance: MELPHALAN
     Dosage: 75 MILLIGRAM (CYCLE 2)
     Route: 013
  2. ETOPOSIDE. [Suspect]
     Active Substance: ETOPOSIDE
     Indication: RETINOBLASTOMA
     Dosage: UNK (3 CYCLES)
     Route: 065
  3. TOPOTECAN [Suspect]
     Active Substance: TOPOTECAN HYDROCHLORIDE
     Indication: RETINOBLASTOMA
     Dosage: 1 MILLIGRAM (CYCLE 2)
     Route: 013
  4. TOPOTECAN [Suspect]
     Active Substance: TOPOTECAN HYDROCHLORIDE
     Dosage: 1 MILLIGRAM (CYCLE 4)
     Route: 013
  5. VINCRISTINE [Suspect]
     Active Substance: VINCRISTINE
     Indication: RETINOBLASTOMA
     Dosage: UNK (3 CYCLES)
     Route: 065
  6. MELPHALAN. [Suspect]
     Active Substance: MELPHALAN
     Indication: RETINOBLASTOMA
     Dosage: 75 MILLIGRAM (CYCLE 1)
     Route: 013
  7. MELPHALAN. [Suspect]
     Active Substance: MELPHALAN
     Dosage: 75 MILLIGRAM (CYCLE 4)
     Route: 013
  8. CARBOPLATIN. [Suspect]
     Active Substance: CARBOPLATIN
     Indication: RETINOBLASTOMA
     Dosage: UNK (3 CYCLES)
     Route: 065
  9. MELPHALAN. [Suspect]
     Active Substance: MELPHALAN
     Dosage: 75 MILLIGRAM (CYCLE 3)
     Route: 013

REACTIONS (3)
  - Retinal artery stenosis [Unknown]
  - Product use issue [Unknown]
  - Product use in unapproved indication [Unknown]
